FAERS Safety Report 4362168-5 (Version None)
Quarter: 2004Q2

REPORT INFORMATION
  Report Type: 
  Country: None (occurrence: None)
  Receive Date: 20040518
  Receipt Date: 20040506
  Transmission Date: 20050107
  Serious: Yes (Hospitalization)
  Sender: FDA-Public Use
  Company Number: 163-20785-03100441

PATIENT
  Age: 54 Year
  Sex: Male

DRUGS (2)
  1. THALOMID [Suspect]
     Indication: HEPATIC NEOPLASM MALIGNANT
     Dosage: 200 MG, DAILY, ORAL
     Route: 048
     Dates: start: 20030127
  2. THALOMID [Suspect]

REACTIONS (2)
  - PNEUMOTHORAX [None]
  - PROCEDURAL COMPLICATION [None]
